FAERS Safety Report 13401315 (Version 2)
Quarter: 2017Q2

REPORT INFORMATION
  Report Type: Report from Study
  Country: US (occurrence: US)
  Receive Date: 20170404
  Receipt Date: 20170518
  Transmission Date: 20170830
  Serious: Yes (Death, Hospitalization)
  Sender: FDA-Public Use
  Company Number: US-CELGENEUS-USA-2017031113

PATIENT
  Age: 76 Year
  Sex: Female
  Weight: 55.8 kg

DRUGS (3)
  1. POMALYST [Suspect]
     Active Substance: POMALIDOMIDE
     Indication: PLASMA CELL MYELOMA
     Dosage: 3 MILLIGRAM
     Route: 048
     Dates: start: 20170109, end: 20170228
  2. BORTEZOMIB [Suspect]
     Active Substance: BORTEZOMIB
     Indication: PLASMA CELL MYELOMA
     Dosage: 1 MILLIGRAM/KILOGRAM
     Route: 041
     Dates: start: 20170109, end: 20170215
  3. BORTEZOMIB [Suspect]
     Active Substance: BORTEZOMIB
     Dosage: 1 MILLIGRAM/SQ. METER
     Route: 041
     Dates: start: 20170109, end: 20170215

REACTIONS (4)
  - Neutrophil count decreased [Unknown]
  - Sepsis [Fatal]
  - White blood cell count decreased [Unknown]
  - Lymphocyte count decreased [Unknown]

NARRATIVE: CASE EVENT DATE: 20170301
